FAERS Safety Report 8829831 (Version 2)
Quarter: 2012Q4

REPORT INFORMATION
  Report Type: 
  Country: US (occurrence: US)
  Receive Date: 20121008
  Receipt Date: 20121011
  Transmission Date: 20130627
  Serious: Yes (Other)
  Sender: FDA-Public Use
  Company Number: US-ROCHE-1141782

PATIENT
  Age: 21 Year
  Sex: Female

DRUGS (1)
  1. NEUPOGEN [Suspect]
     Indication: PRODUCT USED FOR UNKNOWN INDICATION
     Dosage: bolus
     Route: 058

REACTIONS (13)
  - Posterior reversible encephalopathy syndrome [Recovered/Resolved]
  - Hypoaesthesia [Unknown]
  - Anxiety [Unknown]
  - Hemianopia homonymous [Unknown]
  - Agitation [Unknown]
  - Headache [Unknown]
  - Vision blurred [Unknown]
  - Nausea [Unknown]
  - Vomiting [Unknown]
  - Leukocytosis [Unknown]
  - Confusional state [Unknown]
  - Loss of consciousness [Unknown]
  - Monoparesis [Unknown]
